FAERS Safety Report 7916487-3 (Version None)
Quarter: 2011Q4

REPORT INFORMATION
  Report Type: 
  Country: None (occurrence: None)
  Receive Date: 20111114
  Receipt Date: 20111031
  Transmission Date: 20120403
  Serious: Yes (Other)
  Sender: FDA-Public Use
  Company Number: 2011P1010079

PATIENT

DRUGS (7)
  1. IV FLUIDS [Concomitant]
  2. OXYGEN [Concomitant]
  3. IPRATROPIUM BROMIDE [Concomitant]
  4. ALBUTEROL [Concomitant]
  5. METHYLPREDNISOLONE [Concomitant]
  6. TERBUTALINE [Suspect]
     Indication: STATUS ASTHMATICUS
     Dosage: 5 UG/KG;XI;IV, 0.1-1 UG/KG;PER MINUTE;IV, 0.5-1 UG/KG;EVERY 30 MINUTES;IV
     Route: 042
  7. BROMIDE [Concomitant]

REACTIONS (3)
  - ENDOCARDIAL DISEASE [None]
  - TROPONIN I INCREASED [None]
  - ELECTROCARDIOGRAM ST SEGMENT ABNORMAL [None]
